FAERS Safety Report 8477994 (Version 2)
Quarter: 2012Q4

REPORT INFORMATION
  Report Type: 
  Country: ZA (occurrence: ZA)
  Receive Date: 20120327
  Receipt Date: 20121207
  Transmission Date: 20130627
  Serious: Yes (Disabling)
  Sender: FDA-Public Use
  Company Number: ZA-SANOFI-AVENTIS-2011SA019469

PATIENT
  Age: 33 Year
  Sex: Female

DRUGS (10)
  1. TAXOTERE [Suspect]
     Indication: BREAST CANCER
     Route: 042
     Dates: start: 20080827, end: 20080827
  2. TAXOTERE [Suspect]
     Indication: BREAST CANCER
     Route: 042
     Dates: start: 20080916, end: 20080916
  3. TAXOTERE [Suspect]
     Indication: BREAST CANCER
     Route: 042
     Dates: start: 20081007, end: 20081007
  4. TAXOTERE [Suspect]
     Indication: BREAST CANCER
     Route: 042
     Dates: start: 20081027, end: 20081027
  5. CORTICOSTEROIDS [Concomitant]
     Indication: PREMEDICATION
     Route: 065
  6. NEUPOGEN [Concomitant]
     Indication: G-CSF PROPHYLAXIS
     Route: 065
  7. ENDOXAN [Concomitant]
     Indication: BREAST CANCER
     Dates: start: 20080711, end: 20080731
  8. FLUOROURACIL [Concomitant]
     Indication: BREAST CANCER
     Dates: start: 20080711, end: 20080731
  9. ANTHRACYCLINES [Concomitant]
     Indication: BREAST CANCER
  10. EPIRUBICIN [Concomitant]
     Indication: BREAST CANCER
     Dates: start: 20080711, end: 20080731

REACTIONS (2)
  - Stress [Not Recovered/Not Resolved]
  - Alopecia [Not Recovered/Not Resolved]
